FAERS Safety Report 9128434 (Version 1)
Quarter: 2013Q1

REPORT INFORMATION
  Report Type: Spontaneous
  Country: US (occurrence: US)
  Receive Date: 20130228
  Receipt Date: 20130228
  Transmission Date: 20140127
  Serious: No
  Sender: FDA-Public Use
  Company Number: US-GLAXOSMITHKLINE-A0986382A

PATIENT
  Age: 59 Year
  Sex: Female

DRUGS (2)
  1. SUMATRIPTAN [Suspect]
     Indication: MIGRAINE
     Route: 042
  2. DEVICE [Suspect]

REACTIONS (4)
  - Drug ineffective [Unknown]
  - Migraine [Unknown]
  - Device malfunction [Unknown]
  - Product quality issue [Unknown]
